FAERS Safety Report 5106201-1 (Version None)
Quarter: 2006Q3

REPORT INFORMATION
  Report Type: 
  Country: None (occurrence: None)
  Receive Date: 20060918
  Receipt Date: 20060807
  Transmission Date: 20061208
  Serious: Yes (Hospitalization)
  Sender: FDA-Public Use
  Company Number: JP-BAYER-200610947BYL

PATIENT
  Age: 77 Year
  Sex: Female

DRUGS (10)
  1. ASPIRIN [Suspect]
     Indication: CEREBRAL INFARCTION
     Dosage: TOTAL DAILY DOSE: 100 MG  UNIT DOSE: 100 MG
     Route: 048
     Dates: end: 20060807
  2. DEPAKENE [Suspect]
     Indication: EPILEPSY
     Dosage: UNIT DOSE: 200 MG
     Route: 048
     Dates: end: 20060831
  3. AMLODIN [Suspect]
     Dosage: TOTAL DAILY DOSE: 5 MG  UNIT DOSE: 5 MG
     Route: 048
  4. ALLORIN [Suspect]
     Route: 048
  5. GLAKAY [Concomitant]
     Dosage: TOTAL DAILY DOSE: 45 MG
     Route: 048
  6. THEO-SLOW [Concomitant]
     Dosage: TOTAL DAILY DOSE: 400 MG  UNIT DOSE: 100 MG
     Route: 048
  7. METHILEFT [Concomitant]
     Dosage: TOTAL DAILY DOSE: 50 ?G  UNIT DOSE: 50 ?G
     Route: 048
  8. LEBELBON [Concomitant]
     Dosage: TOTAL DAILY DOSE: 12 MG  UNIT DOSE: 4 MG
     Route: 048
  9. BRICANYL [Concomitant]
     Dosage: TOTAL DAILY DOSE: 6 MG  UNIT DOSE: 2 MG
     Route: 048
  10. FLUTIDE:DISKUS [Concomitant]
     Route: 055

REACTIONS (1)
  - THROMBOCYTOPENIA [None]
